FAERS Safety Report 4828092-6 (Version None)
Quarter: 2005Q4

REPORT INFORMATION
  Report Type: 
  Country: None (occurrence: None)
  Receive Date: 20051110
  Receipt Date: 20051031
  Transmission Date: 20060501
  Serious: Yes (Other)
  Sender: FDA-Public Use
  Company Number: 2005147038

PATIENT
  Age: 62 Year
  Sex: Female
  Weight: 63 kg

DRUGS (7)
  1. NORVASC [Suspect]
     Indication: ILL-DEFINED DISORDER
     Dosage: 5 + 2.5MG ( 1 IN 1 D), ORAL - SEE IMAGE
     Route: 048
     Dates: end: 20050101
  2. NORVASC [Suspect]
     Indication: ILL-DEFINED DISORDER
     Dosage: 5 + 2.5MG ( 1 IN 1 D), ORAL - SEE IMAGE
     Route: 048
     Dates: start: 20020419
  3. CLARITHROMYCIN [Suspect]
     Indication: NASOPHARYNGITIS
     Dosage: 400 MG (200 MG, 2 IN 1 D), ORAL
     Route: 048
     Dates: start: 20051022, end: 20051022
  4. OLMETEC (OLMESARTAN) [Concomitant]
  5. HUSTAGIN (PLANTAGO MAJOR) [Concomitant]
  6. ALLERGIN (CHLORPHENAMINE MALEATE) [Concomitant]
  7. MEDICON (DEXTROMETHORPHAN HYDROBROMIDE) [Concomitant]

REACTIONS (6)
  - DRUG INTERACTION [None]
  - FACE INJURY [None]
  - FALL [None]
  - NASOPHARYNGITIS [None]
  - SYNCOPE [None]
  - UPPER RESPIRATORY TRACT INFLAMMATION [None]
